FAERS Safety Report 20579236 (Version 1)
Quarter: 2022Q1

REPORT INFORMATION
  Report Type: Spontaneous
  Country: JP (occurrence: JP)
  Receive Date: 20220310
  Receipt Date: 20220310
  Transmission Date: 20220423
  Serious: Yes (Death, Hospitalization)
  Sender: FDA-Public Use
  Company Number: JP-ABBVIE-22K-087-4310998-00

PATIENT
  Age: 87 Year

DRUGS (5)
  1. VENCLEXTA [Suspect]
     Active Substance: VENETOCLAX
     Indication: Blastic plasmacytoid dendritic cell neoplasia
     Route: 048
     Dates: start: 20220111
  2. VENCLEXTA [Suspect]
     Active Substance: VENETOCLAX
     Route: 048
     Dates: start: 20220207, end: 20220308
  3. VIDAZA [Suspect]
     Active Substance: AZACITIDINE
     Indication: Disease recurrence
     Route: 065
  4. ITRACONAZOLE [Concomitant]
     Active Substance: ITRACONAZOLE
     Indication: Infection prophylaxis
  5. FEBUXOSTAT [Concomitant]
     Active Substance: FEBUXOSTAT
     Indication: Product used for unknown indication
     Route: 048

REACTIONS (5)
  - Tumour lysis syndrome [Fatal]
  - Renal failure [Fatal]
  - Condition aggravated [Unknown]
  - Acute myeloid leukaemia recurrent [Unknown]
  - Off label use [Unknown]
